FAERS Safety Report 20526583 (Version 1)
Quarter: 2022Q1

REPORT INFORMATION
  Report Type: Spontaneous
  Country: US (occurrence: None)
  Receive Date: 20220226
  Receipt Date: 20220226
  Transmission Date: 20220424
  Serious: Yes (Other)
  Sender: FDA-Public Use
  Company Number: None

PATIENT
  Age: 36 Year
  Sex: Male
  Weight: 83.7 kg

DRUGS (4)
  1. FINASTERIDE\MINOXIDIL [Suspect]
     Active Substance: FINASTERIDE\MINOXIDIL
     Indication: Androgenetic alopecia
     Dosage: OTHER QUANTITY : 6 SPRAY(S);?FREQUENCY : TWICE A DAY;?
     Route: 061
     Dates: start: 20211208, end: 20220221
  2. OXYBUTYNIN [Concomitant]
  3. LORAZEPAM [Concomitant]
  4. HYDROXYZINE [Concomitant]

REACTIONS (7)
  - Mood swings [None]
  - Depression [None]
  - Anxiety [None]
  - Fatigue [None]
  - Depressed level of consciousness [None]
  - Testicular pain [None]
  - Semen analysis abnormal [None]

NARRATIVE: CASE EVENT DATE: 20220220
